FAERS Safety Report 13923232 (Version 1)
Quarter: 2017Q3

REPORT INFORMATION
  Report Type: Spontaneous
  Country: JP (occurrence: JP)
  Receive Date: 20170831
  Receipt Date: 20170831
  Transmission Date: 20171127
  Serious: Yes (Hospitalization)
  Sender: FDA-Public Use
  Company Number: JP-ROCHE-1971346

PATIENT
  Age: 70 Year
  Sex: Female
  Weight: 42 kg

DRUGS (3)
  1. TAXOL [Suspect]
     Active Substance: PACLITAXEL
     Indication: CERVIX CARCINOMA
     Dosage: DOSAGE IS UNCERTAIN.
     Route: 041
     Dates: start: 20170519, end: 20170616
  2. CARBOPLATIN. [Suspect]
     Active Substance: CARBOPLATIN
     Indication: CERVIX CARCINOMA
     Dosage: DOSAGE IS UNCERTAIN.
     Route: 041
     Dates: start: 20170519, end: 20170616
  3. AVASTIN [Suspect]
     Active Substance: BEVACIZUMAB
     Indication: CERVIX CARCINOMA
     Dosage: TREATMENT CYCLE OF THIS MEDICINE NUMBER: 2
     Route: 041
     Dates: start: 20170519, end: 20170616

REACTIONS (3)
  - Anal fistula [Recovering/Resolving]
  - Anaemia [Recovering/Resolving]
  - Uterine fistula [Recovering/Resolving]

NARRATIVE: CASE EVENT DATE: 20170711
